FAERS Safety Report 5588965-6 (Version None)
Quarter: 2008Q1

REPORT INFORMATION
  Report Type: 
  Country: None (occurrence: None)
  Receive Date: 20080111
  Receipt Date: 20080109
  Transmission Date: 20080703
  Serious: Yes (Death)
  Sender: FDA-Public Use
  Company Number: US-GENENTECH-227570

PATIENT
  Sex: Female

DRUGS (9)
  1. RANIBIZUMAB [Suspect]
     Indication: MACULAR DEGENERATION
     Route: 031
     Dates: start: 20060418, end: 20060516
  2. LEVOTHROID [Concomitant]
     Indication: HYPOTHYROIDISM
     Dates: start: 19850101
  3. NORVASC [Concomitant]
     Indication: HYPERTENSION
     Dates: start: 19960101
  4. TOPROL-XL [Concomitant]
     Indication: HYPERTENSION
     Dates: start: 19960101
  5. PREDNISONE TAB [Concomitant]
     Indication: TEMPORAL ARTERITIS
     Dates: start: 20020101
  6. NEXIUM [Concomitant]
     Indication: GASTROOESOPHAGEAL REFLUX DISEASE
     Dates: start: 20050101
  7. MOTRIN [Concomitant]
     Indication: ARTHRITIS
     Dates: start: 20020101
  8. RETINAVITES [Concomitant]
     Indication: MACULAR DEGENERATION
     Dates: start: 20030903
  9. STEROID (UNK INGREDIENTS) [Concomitant]
     Indication: ARTHRITIS
     Dates: start: 20060610

REACTIONS (1)
  - AORTIC STENOSIS [None]
